FAERS Safety Report 13952754 (Version 1)
Quarter: 2017Q3

REPORT INFORMATION
  Report Type: Spontaneous
  Country: US (occurrence: US)
  Receive Date: 20170911
  Receipt Date: 20170911
  Transmission Date: 20171128
  Serious: No
  Sender: FDA-Public Use
  Company Number: US-TEVA-749255USA

PATIENT
  Age: 61 Year
  Sex: Male

DRUGS (1)
  1. FENTANYL. [Suspect]
     Active Substance: FENTANYL
     Indication: SPINAL OPERATION
     Dosage: 16.6667 MICROGRAM DAILY;
     Route: 062

REACTIONS (5)
  - Application site erythema [Unknown]
  - Product adhesion issue [Unknown]
  - Skin disorder [Unknown]
  - Application site pain [Unknown]
  - Rash [Unknown]

NARRATIVE: CASE EVENT DATE: 20170223
